FAERS Safety Report 7536784-3 (Version None)
Quarter: 2011Q2

REPORT INFORMATION
  Report Type: 
  Country: None (occurrence: None)
  Receive Date: 20110609
  Receipt Date: 20110525
  Transmission Date: 20111010
  Serious: Yes (Hospitalization, Other)
  Sender: FDA-Public Use
  Company Number: FR-ROCHE-772531

PATIENT
  Sex: Male
  Weight: 90 kg

DRUGS (24)
  1. PREDNISOLONE [Suspect]
     Indication: RENAL TRANSPLANT
     Dosage: LAST DOSE PRIOR TO SAE:13 FEBRUARY 2011
     Route: 048
     Dates: start: 20110104
  2. PHOSPHONEUROS [Concomitant]
     Route: 048
     Dates: start: 20110225
  3. WARFARIN SODIUM [Concomitant]
     Dosage: DRUG TRADE NAME:WARFARINE
     Dates: start: 20110111
  4. MYCOPHENOLATE MEFETIL [Suspect]
     Indication: RENAL TRANSPLANT
     Dosage: LAST DOSE PRIOR TO SAE:24 FEBRUARY 2011
     Route: 048
     Dates: start: 20110104
  5. ARANESP [Concomitant]
     Route: 058
     Dates: start: 20110315
  6. PHOSPHONEUROS [Concomitant]
     Dosage: TOTAL DAILY DOSE:150 DROPS/DAY
     Route: 048
     Dates: start: 20110111
  7. POTASSIUM CHLORIDE [Concomitant]
     Dates: start: 20110128, end: 20110204
  8. CERTICAN [Suspect]
     Indication: RENAL TRANSPLANT
     Dosage: LAST DOSE PRIOR TO SAE:20 FEBRUARY 2011
     Route: 048
     Dates: start: 20110104
  9. OFLOXACIN [Concomitant]
     Dates: start: 20110111, end: 20110204
  10. VENOFER [Concomitant]
     Dosage: DOSE: 100 MG/MOS.
     Route: 042
     Dates: start: 20110328
  11. ACETAMINOPHEN [Concomitant]
     Route: 048
     Dates: start: 20110324
  12. VALACYCLOVIR [Concomitant]
     Dosage: FREQUENCY:EVERY SECOND DAY
     Route: 048
     Dates: start: 20110104
  13. PENTACARINAT [Concomitant]
     Dosage: DOSE: 01 AER
     Route: 055
     Dates: start: 20110104
  14. PANTOPRAZOLE [Concomitant]
     Route: 048
     Dates: start: 20110104
  15. SODIUM BICARBONATE [Concomitant]
     Dates: start: 20110124
  16. LASIX [Concomitant]
     Route: 048
     Dates: start: 20110124, end: 20110214
  17. VALACYCLOVIR [Concomitant]
     Route: 048
     Dates: start: 20110218
  18. POTASSIUM CHLORIDE [Concomitant]
     Dosage: FREQUENCY: 6G/D
     Dates: start: 20110414
  19. LEVOTHYROXINE SODIUM [Concomitant]
     Route: 048
     Dates: start: 20110302
  20. LOVENOX [Concomitant]
     Dates: start: 20110104, end: 20110205
  21. CINACALCET HYDROCHLORIDE [Concomitant]
     Dates: start: 20110111
  22. LASIX [Concomitant]
     Route: 048
     Dates: start: 20110324
  23. PENTACARINAT [Concomitant]
     Route: 055
     Dates: start: 20110210
  24. PROPRANOLOL [Concomitant]
     Route: 048
     Dates: start: 20110111

REACTIONS (3)
  - TRANSPLANT REJECTION [None]
  - INFLAMMATION [None]
  - LYMPHOCELE [None]
